FAERS Safety Report 8455940-3 (Version None)
Quarter: 2012Q2

REPORT INFORMATION
  Report Type: 
  Country: None (occurrence: None)
  Receive Date: 20120621
  Receipt Date: 20120620
  Transmission Date: 20120825
  Serious: Yes (Death, Hospitalization, Other)
  Sender: FDA-Public Use
  Company Number: PHHY2012GB052852

PATIENT
  Age: 62 Year
  Sex: Female
  Weight: 61.5 kg

DRUGS (6)
  1. CO-DYDRAMOL [Concomitant]
     Indication: PAIN
     Dosage: 500 MG, UNK
     Route: 048
  2. AVASTIN [Suspect]
     Indication: COLON CANCER METASTATIC
     Dosage: 312.5 MG, QW2
     Route: 042
     Dates: start: 20111115, end: 20120313
  3. IRINOTECAN HCL [Suspect]
     Indication: COLON CANCER METASTATIC
     Dosage: 300 MG, QW2
     Route: 042
     Dates: start: 20111101, end: 20120313
  4. FLUOROURACIL [Suspect]
     Indication: COLON CANCER METASTATIC
     Dosage: 550 MG, QW2
     Route: 042
     Dates: start: 20111101, end: 20120313
  5. AMLODIPINE [Concomitant]
     Indication: HYPERTENSION
     Dosage: 5 MG, QD
     Route: 048
  6. LANSOPRAZOLE [Concomitant]
     Dosage: 30 MG, QD

REACTIONS (8)
  - ABDOMINAL PAIN [None]
  - MALAISE [None]
  - VOMITING [None]
  - SMALL INTESTINAL OBSTRUCTION [None]
  - HYPOTENSION [None]
  - UPPER GASTROINTESTINAL HAEMORRHAGE [None]
  - HAEMATEMESIS [None]
  - PULMONARY EMBOLISM [None]
